FAERS Safety Report 17668425 (Version 1)
Quarter: 2020Q2

REPORT INFORMATION
  Report Type: Spontaneous
  Country: US (occurrence: US)
  Receive Date: 20200415
  Receipt Date: 20200415
  Transmission Date: 20200713
  Serious: No
  Sender: FDA-Public Use
  Company Number: US-ASTRAZENECA-2020SE45852

PATIENT
  Age: 31271 Day
  Sex: Male

DRUGS (4)
  1. HUMALOG [Concomitant]
     Active Substance: INSULIN LISPRO
     Dosage: THREE TIMES A DAY
     Route: 062
  2. LANTUS [Concomitant]
     Active Substance: INSULIN GLARGINE
     Dosage: 20 IN THE MORNING AND 20 IN THE EVENING
     Route: 058
  3. BYDUREON [Suspect]
     Active Substance: EXENATIDE
     Indication: GLYCOSYLATED HAEMOGLOBIN INCREASED
     Route: 058
     Dates: start: 20200202
  4. INSULIN [Concomitant]
     Active Substance: INSULIN NOS

REACTIONS (9)
  - Hypoacusis [Unknown]
  - Blood glucose decreased [Unknown]
  - Vomiting [Recovered/Resolved]
  - Feeling abnormal [Recovered/Resolved]
  - Irritability [Unknown]
  - Retching [Recovered/Resolved]
  - Blood glucose fluctuation [Unknown]
  - Abdominal discomfort [Recovered/Resolved]
  - Intentional device misuse [Unknown]

NARRATIVE: CASE EVENT DATE: 20200330
